FAERS Safety Report 9307988 (Version 2)
Quarter: 2013Q2

REPORT INFORMATION
  Report Type: Spontaneous
  Country: CN (occurrence: CN)
  Receive Date: 20130524
  Receipt Date: 20130528
  Transmission Date: 20140414
  Serious: Yes (Hospitalization)
  Sender: FDA-Public Use
  Company Number: CN-BAYER-2013-062932

PATIENT
  Age: 68 Year
  Sex: Male

DRUGS (3)
  1. IOPROMIDE [Suspect]
     Indication: REGIONAL CHEMOTHERAPY
     Dosage: 30 ML, ONCE
     Route: 013
     Dates: start: 20091201
  2. AMLODIPINE BESYLATE [Concomitant]
     Indication: HYPERTENSION
  3. INSULIN [Concomitant]
     Indication: DIABETES MELLITUS

REACTIONS (5)
  - Non-cardiogenic pulmonary oedema [Recovered/Resolved]
  - Dyspnoea [Recovered/Resolved]
  - Cough [Recovered/Resolved]
  - Productive cough [Recovered/Resolved]
  - Off label use [Recovered/Resolved]
